FAERS Safety Report 23727554 (Version 1)
Quarter: 2024Q2

REPORT INFORMATION
  Report Type: Spontaneous
  Country: US (occurrence: US)
  Receive Date: 20240410
  Receipt Date: 20240410
  Transmission Date: 20240716
  Serious: No
  Sender: FDA-Public Use
  Company Number: US-INSUD PHARMA-2404US03000

PATIENT

DRUGS (3)
  1. SLYND [Suspect]
     Active Substance: DROSPIRENONE
     Indication: Premenstrual dysphoric disorder
     Dosage: UNK UNK, QD
     Route: 048
     Dates: start: 20240327
  2. SLYND [Suspect]
     Active Substance: DROSPIRENONE
     Indication: Endometriosis
  3. SLYND [Suspect]
     Active Substance: DROSPIRENONE
     Indication: Migraine

REACTIONS (7)
  - Mood swings [Not Recovered/Not Resolved]
  - Crying [Not Recovered/Not Resolved]
  - Irritability [Not Recovered/Not Resolved]
  - Premenstrual pain [Not Recovered/Not Resolved]
  - Intermenstrual bleeding [Recovered/Resolved]
  - Menstrual disorder [Recovered/Resolved]
  - Product use in unapproved indication [Unknown]

NARRATIVE: CASE EVENT DATE: 20240101
